FAERS Safety Report 5472269-6 (Version None)
Quarter: 2007Q3

REPORT INFORMATION
  Report Type: 
  Country: None (occurrence: None)
  Receive Date: 20070927
  Receipt Date: 20070910
  Transmission Date: 20080115
  Serious: Yes (Other)
  Sender: FDA-Public Use
  Company Number: 07092251

PATIENT
  Age: 39 Year
  Sex: Female

DRUGS (1)
  1. TERCONAZOLE [Suspect]
     Indication: VULVOVAGINAL MYCOTIC INFECTION
     Dosage: 1APLF, ONCE, RECTAL
     Route: 054
     Dates: start: 20070907

REACTIONS (2)
  - ABORTION SPONTANEOUS [None]
  - DRUG EXPOSURE DURING PREGNANCY [None]
